FAERS Safety Report 18712768 (Version 1)
Quarter: 2021Q1

REPORT INFORMATION
  Report Type: Spontaneous
  Country: US (occurrence: US)
  Receive Date: 20210107
  Receipt Date: 20210107
  Transmission Date: 20210419
  Serious: Yes (Hospitalization)
  Sender: FDA-Public Use
  Company Number: US-ELI_LILLY_AND_COMPANY-US202101000550

PATIENT
  Age: 52 Year
  Sex: Male

DRUGS (9)
  1. JARDIANCE [Concomitant]
     Active Substance: EMPAGLIFLOZIN
     Indication: DIABETES MELLITUS
     Dosage: UNK
  2. HUMULIN R U?500 [Suspect]
     Active Substance: INSULIN HUMAN
     Indication: DIABETES MELLITUS
     Dosage: 85 U, EACH MORNING
     Route: 058
     Dates: start: 2019
  3. HUMULIN R U?500 [Suspect]
     Active Substance: INSULIN HUMAN
     Dosage: 85 U, EACH MORNING
     Route: 058
  4. HUMULIN R U?500 [Suspect]
     Active Substance: INSULIN HUMAN
     Dosage: 80 U, EACH EVENING (AT DINNER)
     Route: 058
  5. HUMULIN R U?500 [Suspect]
     Active Substance: INSULIN HUMAN
     Indication: DIABETES MELLITUS
     Dosage: 85 U, EACH MORNING
     Route: 058
     Dates: start: 2019
  6. HUMULIN R U?500 [Suspect]
     Active Substance: INSULIN HUMAN
     Dosage: 80 U, EACH EVENING (AT DINNER)
     Route: 058
     Dates: start: 2019
  7. HUMULIN R U?500 [Suspect]
     Active Substance: INSULIN HUMAN
     Dosage: 85 U, EACH MORNING
     Route: 058
  8. HUMULIN R U?500 [Suspect]
     Active Substance: INSULIN HUMAN
     Dosage: 80 U, EACH EVENING (AT DINNER)
     Route: 058
     Dates: start: 2019
  9. HUMULIN R U?500 [Suspect]
     Active Substance: INSULIN HUMAN
     Dosage: 80 U, EACH EVENING (AT DINNER)
     Route: 058

REACTIONS (5)
  - Cardiac disorder [Recovering/Resolving]
  - Hypoglycaemia [Unknown]
  - Dyspnoea [Recovering/Resolving]
  - Feeling abnormal [Recovering/Resolving]
  - Malaise [Recovering/Resolving]

NARRATIVE: CASE EVENT DATE: 202009
